FAERS Safety Report 8224913-8 (Version None)
Quarter: 2012Q1

REPORT INFORMATION
  Report Type: 
  Country: None (occurrence: None)
  Receive Date: 20120321
  Receipt Date: 20120314
  Transmission Date: 20120608
  Serious: Yes (Hospitalization, Disabling, Other)
  Sender: FDA-Public Use
  Company Number: CZ-SANOFI-AVENTIS-2012SA016070

PATIENT
  Age: 42 Year
  Sex: Female

DRUGS (9)
  1. DEXAMETHASONE [Suspect]
     Indication: PREMEDICATION
     Route: 042
     Dates: start: 20110101, end: 20110101
  2. DOXORUBICIN HCL [Suspect]
     Route: 042
     Dates: start: 20110101, end: 20110101
  3. BISULEPIN [Suspect]
     Indication: PREMEDICATION
     Route: 042
     Dates: start: 20110101, end: 20110101
  4. LITHIUM CARBONATE [Concomitant]
  5. PACLITAXEL [Suspect]
     Dosage: DOSE: 12X WEEKLY 80 MG/M2
     Route: 042
     Dates: start: 20110101, end: 20110101
  6. CYCLOPHOSPHAMIDE [Suspect]
     Route: 042
     Dates: start: 20110101, end: 20110101
  7. RANITIDINE [Suspect]
     Indication: PREMEDICATION
     Route: 042
     Dates: start: 20110101, end: 20110101
  8. DOCETAXEL [Suspect]
     Dosage: RECEIVED 4 CYCLES
     Route: 042
     Dates: start: 20110101, end: 20110101
  9. ONDANSETRON [Concomitant]
     Indication: PREMEDICATION
     Route: 042
     Dates: start: 20110101, end: 20110101

REACTIONS (10)
  - DISTURBANCE IN ATTENTION [None]
  - FEBRILE NEUTROPENIA [None]
  - HALLUCINATION, AUDITORY [None]
  - DYSPHEMIA [None]
  - SUICIDAL IDEATION [None]
  - DYSAESTHESIA [None]
  - ANXIETY [None]
  - HALLUCINATION [None]
  - HALLUCINATION, VISUAL [None]
  - HEADACHE [None]
